FAERS Safety Report 10241466 (Version 1)
Quarter: 2014Q2

REPORT INFORMATION
  Report Type: Report from Study
  Country: CA (occurrence: CA)
  Receive Date: 20140617
  Receipt Date: 20140617
  Transmission Date: 20141212
  Serious: Yes (Other)
  Sender: FDA-Public Use
  Company Number: CA-JNJFOC-20140607269

PATIENT
  Age: 49 Year
  Sex: Female
  Weight: 133 kg

DRUGS (3)
  1. REMICADE [Suspect]
     Indication: PRODUCT USED FOR UNKNOWN INDICATION
     Route: 042
     Dates: start: 2014
  2. PREDNISONE [Concomitant]
     Route: 048
  3. IMURAN [Concomitant]
     Route: 048

REACTIONS (1)
  - Raynaud^s phenomenon [Unknown]
